FAERS Safety Report 25125083 (Version 4)
Quarter: 2025Q2

REPORT INFORMATION
  Report Type: Spontaneous
  Country: DE (occurrence: DE)
  Receive Date: 20250326
  Receipt Date: 20250604
  Transmission Date: 20250716
  Serious: Yes (Hospitalization, Other)
  Sender: MYLAN
  Company Number: DE-002147023-NVSC2025DE025581

PATIENT
  Sex: Female

DRUGS (12)
  1. CANDESARTAN [Suspect]
     Active Substance: CANDESARTAN
     Indication: Hypertension
     Dosage: 16 MILLIGRAM, BID (32 MG, QD)
  2. CANDESARTAN [Suspect]
     Active Substance: CANDESARTAN
     Dosage: 16 MILLIGRAM, BID (32 MG, QD)
     Route: 065
  3. CANDESARTAN [Suspect]
     Active Substance: CANDESARTAN
     Dosage: 16 MILLIGRAM, BID (32 MG, QD)
     Route: 065
  4. CANDESARTAN [Suspect]
     Active Substance: CANDESARTAN
     Dosage: 16 MILLIGRAM, BID (32 MG, QD)
  5. HYDROCHLOROTHIAZIDE [Suspect]
     Active Substance: HYDROCHLOROTHIAZIDE
     Indication: Hypertension
     Dosage: 6.75 MILLIGRAM, BID (135 MG, QD)
  6. HYDROCHLOROTHIAZIDE [Suspect]
     Active Substance: HYDROCHLOROTHIAZIDE
     Dosage: 6.75 MILLIGRAM, BID (135 MG, QD)
     Route: 065
  7. HYDROCHLOROTHIAZIDE [Suspect]
     Active Substance: HYDROCHLOROTHIAZIDE
     Dosage: 6.75 MILLIGRAM, BID (135 MG, QD)
     Route: 065
  8. HYDROCHLOROTHIAZIDE [Suspect]
     Active Substance: HYDROCHLOROTHIAZIDE
     Dosage: 6.75 MILLIGRAM, BID (135 MG, QD)
  9. LUCENTIS [Suspect]
     Active Substance: RANIBIZUMAB
     Indication: Neovascular age-related macular degeneration
     Dates: start: 20120801, end: 20250225
  10. LUCENTIS [Suspect]
     Active Substance: RANIBIZUMAB
     Dates: start: 20120801, end: 20250225
  11. LUCENTIS [Suspect]
     Active Substance: RANIBIZUMAB
     Dates: start: 20120801, end: 20250225
  12. LUCENTIS [Suspect]
     Active Substance: RANIBIZUMAB
     Dates: start: 20120801, end: 20250225

REACTIONS (2)
  - Blindness [Not Recovered/Not Resolved]
  - Abdominal pain upper [Not Recovered/Not Resolved]

NARRATIVE: CASE EVENT DATE: 20250101
